FAERS Safety Report 13431591 (Version 3)
Quarter: 2017Q4

REPORT INFORMATION
  Report Type: Spontaneous
  Country: US (occurrence: US)
  Receive Date: 20170412
  Receipt Date: 20171005
  Transmission Date: 20180320
  Serious: Yes (Death, Hospitalization)
  Sender: FDA-Public Use
  Company Number: US-JNJFOC-20170403520

PATIENT
  Age: 79 Year
  Sex: Male

DRUGS (10)
  1. XARELTO [Suspect]
     Active Substance: RIVAROXABAN
     Indication: DEEP VEIN THROMBOSIS
     Dosage: DOSE: 20MG, 90CT
     Route: 048
     Dates: start: 20150108, end: 201604
  2. XARELTO [Suspect]
     Active Substance: RIVAROXABAN
     Indication: ATRIAL FIBRILLATION
     Dosage: DOSE: 20MG, 90CT
     Route: 048
     Dates: start: 20150108, end: 201604
  3. XARELTO [Suspect]
     Active Substance: RIVAROXABAN
     Indication: ATRIAL FIBRILLATION
     Dosage: DOSE: 20MG, 90CT
     Route: 048
     Dates: start: 20140710, end: 20150107
  4. XARELTO [Suspect]
     Active Substance: RIVAROXABAN
     Indication: ANTICOAGULANT THERAPY
     Dosage: DOSE: 20MG, 90CT
     Route: 048
     Dates: start: 20140710, end: 20150107
  5. XARELTO [Suspect]
     Active Substance: RIVAROXABAN
     Indication: PULMONARY EMBOLISM
     Dosage: DOSE: 20MG, 90CT
     Route: 048
     Dates: start: 20140710, end: 20150107
  6. XARELTO [Suspect]
     Active Substance: RIVAROXABAN
     Indication: DEEP VEIN THROMBOSIS
     Dosage: DOSE: 20MG, 90CT
     Route: 048
     Dates: start: 20140710, end: 20150107
  7. XARELTO [Suspect]
     Active Substance: RIVAROXABAN
     Indication: CEREBROVASCULAR ACCIDENT PROPHYLAXIS
     Dosage: DOSE: 20MG, 90CT
     Route: 048
     Dates: start: 20150108, end: 201604
  8. XARELTO [Suspect]
     Active Substance: RIVAROXABAN
     Indication: CEREBROVASCULAR ACCIDENT PROPHYLAXIS
     Dosage: DOSE: 20MG, 90CT
     Route: 048
     Dates: start: 20140710, end: 20150107
  9. XARELTO [Suspect]
     Active Substance: RIVAROXABAN
     Indication: ANTICOAGULANT THERAPY
     Dosage: DOSE: 20MG, 90CT
     Route: 048
     Dates: start: 20150108, end: 201604
  10. XARELTO [Suspect]
     Active Substance: RIVAROXABAN
     Indication: PULMONARY EMBOLISM
     Dosage: DOSE: 20MG, 90CT
     Route: 048
     Dates: start: 20150108, end: 201604

REACTIONS (3)
  - Haemothorax [Unknown]
  - Death [Fatal]
  - Fall [Unknown]

NARRATIVE: CASE EVENT DATE: 20160413
